FAERS Safety Report 5383459-5 (Version None)
Quarter: 2007Q3

REPORT INFORMATION
  Report Type: 
  Country: None (occurrence: None)
  Receive Date: 20070706
  Receipt Date: 20070626
  Transmission Date: 20080115
  Serious: Yes (Death)
  Sender: FDA-Public Use
  Company Number: GXKR2007HR05437

PATIENT
  Age: 39 Year
  Sex: Female

DRUGS (1)
  1. LEKADOL (NGX)(PARACETAMOL) TABLET [Suspect]
     Indication: ABDOMINAL PAIN
     Dosage: ORAL
     Route: 048

REACTIONS (1)
  - DEATH [None]
